FAERS Safety Report 7005174-4 (Version None)
Quarter: 2010Q3

REPORT INFORMATION
  Report Type: 
  Country: None (occurrence: None)
  Receive Date: 20100917
  Receipt Date: 20100903
  Transmission Date: 20110219
  Serious: Yes (Life-Threatening)
  Sender: FDA-Public Use
  Company Number: DSA_43922_2010

PATIENT
  Sex: Male

DRUGS (19)
  1. BUPROPION HYDROCHLORIDE [Suspect]
     Indication: DEPRESSION
     Dosage: 300 MG, ORAL, 150 MG, ORAL
     Route: 048
     Dates: end: 20100524
  2. BUPROPION HYDROCHLORIDE [Suspect]
     Indication: DEPRESSION
     Dosage: 300 MG, ORAL, 150 MG, ORAL
     Route: 048
     Dates: start: 20100531, end: 20100624
  3. VENLAFAXINE HYDROCHLORIDE [Suspect]
     Indication: PRODUCT USED FOR UNKNOWN INDICATION
     Dosage: 150-300 MG PER OS, ORAL, 375 MG, ORAL, 150 MG, ORAL, DF ORAL
     Route: 048
     Dates: start: 20090923, end: 20100401
  4. VENLAFAXINE HYDROCHLORIDE [Suspect]
     Indication: PRODUCT USED FOR UNKNOWN INDICATION
     Dosage: 150-300 MG PER OS, ORAL, 375 MG, ORAL, 150 MG, ORAL, DF ORAL
     Route: 048
     Dates: start: 20100402, end: 20100525
  5. VENLAFAXINE HYDROCHLORIDE [Suspect]
     Indication: PRODUCT USED FOR UNKNOWN INDICATION
     Dosage: 150-300 MG PER OS, ORAL, 375 MG, ORAL, 150 MG, ORAL, DF ORAL
     Route: 048
     Dates: start: 20100526, end: 20100624
  6. LITHIOFOR (LITHIOFOR - LITHIUM SULFATE) 990 MG (NOT SPECIFIED) [Suspect]
     Indication: PRODUCT USED FOR UNKNOWN INDICATION
     Dosage: 330-660 MG PER OS, ORAL, 990 MG, ORAL
     Route: 048
     Dates: start: 20100519, end: 20100524
  7. LITHIOFOR (LITHIOFOR - LITHIUM SULFATE) 990 MG (NOT SPECIFIED) [Suspect]
     Indication: PRODUCT USED FOR UNKNOWN INDICATION
     Dosage: 330-660 MG PER OS, ORAL, 990 MG, ORAL
     Route: 048
     Dates: start: 20100525, end: 20100624
  8. TEMESTA /00273201/ (TEMESTA LORAZEPAM) (3.5 MG, 2.5 MG, 1 MG) (NOT SPE [Suspect]
     Indication: PRODUCT USED FOR UNKNOWN INDICATION
     Dosage: 4.5-7.5 MG PER OS, ORAL,3.5 MG, ORAL, 2.5 MG, ORAL, 1 MG, ORAL
     Route: 048
     Dates: start: 20100512, end: 20100611
  9. TEMESTA /00273201/ (TEMESTA LORAZEPAM) (3.5 MG, 2.5 MG, 1 MG) (NOT SPE [Suspect]
     Indication: PRODUCT USED FOR UNKNOWN INDICATION
     Dosage: 4.5-7.5 MG PER OS, ORAL,3.5 MG, ORAL, 2.5 MG, ORAL, 1 MG, ORAL
     Route: 048
     Dates: start: 20100612, end: 20100616
  10. TEMESTA /00273201/ (TEMESTA LORAZEPAM) (3.5 MG, 2.5 MG, 1 MG) (NOT SPE [Suspect]
     Indication: PRODUCT USED FOR UNKNOWN INDICATION
     Dosage: 4.5-7.5 MG PER OS, ORAL,3.5 MG, ORAL, 2.5 MG, ORAL, 1 MG, ORAL
     Route: 048
     Dates: start: 20100617, end: 20100618
  11. TEMESTA /00273201/ (TEMESTA LORAZEPAM) (3.5 MG, 2.5 MG, 1 MG) (NOT SPE [Suspect]
     Indication: PRODUCT USED FOR UNKNOWN INDICATION
     Dosage: 4.5-7.5 MG PER OS, ORAL,3.5 MG, ORAL, 2.5 MG, ORAL, 1 MG, ORAL
     Route: 048
     Dates: start: 20100619, end: 20100624
  12. PANTOPRAZOLE [Suspect]
     Indication: PRODUCT USED FOR UNKNOWN INDICATION
     Dosage: 20 MG, ORAL
     Route: 048
     Dates: start: 20100617, end: 20100624
  13. ESOMEPRAZOLE (ESOMEPRAZOLE) [Suspect]
     Indication: PRODUCT USED FOR UNKNOWN INDICATION
     Dosage: DF ORAL
     Route: 048
     Dates: start: 20091102
  14. LYRICA [Suspect]
     Indication: PRODUCT USED FOR UNKNOWN INDICATION
     Dosage: 450 MG, ORAL, 300 MG, ORAL
  15. INVEGA [Suspect]
     Indication: PRODUCT USED FOR UNKNOWN INDICATION
     Dosage: 3 MG, ORAL, 300 MG, ORAL
     Route: 048
     Dates: start: 20100617, end: 20100618
  16. INVEGA [Suspect]
     Indication: PRODUCT USED FOR UNKNOWN INDICATION
     Dosage: 3 MG, ORAL, 300 MG, ORAL
     Route: 048
     Dates: start: 20100619, end: 20100624
  17. SEROQUEL [Concomitant]
  18. NOZINAN [Concomitant]
  19. FRAXIPARINE [Concomitant]

REACTIONS (21)
  - ATRIAL SEPTAL DEFECT ACQUIRED [None]
  - BLOOD CHOLESTEROL INCREASED [None]
  - BLOOD TRIGLYCERIDES INCREASED [None]
  - DEPRESSION SUICIDAL [None]
  - DYSLIPIDAEMIA [None]
  - EMBOLISM ARTERIAL [None]
  - FATIGUE [None]
  - HAEMOCONCENTRATION [None]
  - HIGH DENSITY LIPOPROTEIN DECREASED [None]
  - IMMOBILE [None]
  - INTRACARDIAC THROMBUS [None]
  - LOW DENSITY LIPOPROTEIN INCREASED [None]
  - MALAISE [None]
  - PERIPHERAL ARTERIAL OCCLUSIVE DISEASE [None]
  - PERIPHERAL COLDNESS [None]
  - PERIPHERAL ISCHAEMIA [None]
  - PULMONARY EMBOLISM [None]
  - SEDATION [None]
  - SUBCLAVIAN ARTERY OCCLUSION [None]
  - TACHYCARDIA [None]
  - VERTIGO [None]
